FAERS Safety Report 11011201 (Version 1)
Quarter: 2015Q2

REPORT INFORMATION
  Report Type: Spontaneous
  Country: JP (occurrence: JP)
  Receive Date: 20150410
  Receipt Date: 20150410
  Transmission Date: 20150821
  Serious: Yes (Hospitalization)
  Sender: FDA-Public Use
  Company Number: JP-009507513-1504JPN005114

PATIENT
  Age: 65 Year
  Sex: Female

DRUGS (6)
  1. THREENOFEN [Concomitant]
     Active Substance: LOXOPROFEN SODIUM
     Dosage: 180 MG, DAY
     Route: 048
  2. AMLODIPINE [Concomitant]
     Active Substance: AMLODIPINE BESYLATE
     Indication: HYPERTENSION
     Dosage: 2.5 MG, DAY
     Route: 048
  3. LOXONIN [Concomitant]
     Active Substance: LOXOPROFEN SODIUM
     Dosage: 50 MG, AS NEEDED
  4. BONALON [Suspect]
     Active Substance: ALENDRONATE SODIUM
     Indication: OSTEOPOROSIS
     Dosage: 35 MG, WEEKLY
     Route: 048
     Dates: start: 201103, end: 201406
  5. HACHIMI-JIO-GAN [Concomitant]
     Dosage: 5.0 MG, DAY
     Route: 048
  6. REBAMIPIDE [Concomitant]
     Active Substance: REBAMIPIDE
     Dosage: 300 MG, DAY
     Route: 048

REACTIONS (1)
  - Atypical fracture [Recovering/Resolving]

NARRATIVE: CASE EVENT DATE: 201406
